FAERS Safety Report 12823462 (Version 1)
Quarter: 2016Q4

REPORT INFORMATION
  Report Type: Report from Study
  Country: US (occurrence: US)
  Receive Date: 20161007
  Receipt Date: 20161007
  Transmission Date: 20170207
  Serious: Yes (Other)
  Sender: FDA-Public Use
  Company Number: US-ROCHE-1836101

PATIENT
  Age: 60 Year
  Sex: Female
  Weight: 80.4 kg

DRUGS (2)
  1. FOSBRETABULIN TROMETHAMINE [Suspect]
     Active Substance: FOSBRETABULIN TROMETHAMINE
     Indication: FALLOPIAN TUBE CANCER
     Dosage: 01/DEC/2011, 22/DEC/2011, 12/JAN/2012, 02/FEB/2012, 23/FEB/2012, 15/MAR/2012, 05/APR/2012,  26/APR/2
     Route: 042
     Dates: start: 20111110
  2. BEVACIZUMAB [Suspect]
     Active Substance: BEVACIZUMAB
     Indication: FALLOPIAN TUBE CANCER
     Dosage: 01/DEC/2011, 22/DEC/2011, 12/JAN/2012, 02/FEB/2012, 23/FEB/2012, 15/MAR/2012, 05/APR/2012,  26/APR/2
     Route: 042

REACTIONS (2)
  - Hypertension [Unknown]
  - Hypermagnesaemia [Unknown]
